FAERS Safety Report 8996209 (Version 1)
Quarter: 2013Q1

REPORT INFORMATION
  Report Type: Spontaneous
  Country: FR (occurrence: FR)
  Receive Date: 20130103
  Receipt Date: 20130103
  Transmission Date: 20140127
  Serious: Yes (Hospitalization)
  Sender: FDA-Public Use
  Company Number: FR-B.I. PHARMACEUTICALS,INC./RIDGEFIELD-2012-FF-02077FF

PATIENT
  Age: 92 Year
  Sex: Female

DRUGS (8)
  1. SPIRIVA [Suspect]
     Dosage: 18 MCG
     Route: 055
     Dates: start: 20121013
  2. PREVISCAN [Suspect]
     Dosage: 20 MG
     Route: 048
     Dates: end: 20121017
  3. PARACETAMOL [Suspect]
     Route: 048
     Dates: start: 20121012
  4. AMOXICILLINE/ACIDE CLAVULANIQUE [Suspect]
     Dosage: 3 G
     Route: 048
     Dates: start: 20121012
  5. SEREVENT DISKUS [Suspect]
     Dosage: 100 MCG
     Route: 055
     Dates: start: 20121012
  6. TAHOR [Concomitant]
     Dosage: 20 MG
     Route: 048
  7. INEXIUM [Concomitant]
     Dosage: 40 MG
     Route: 048
  8. ADARTREL [Concomitant]
     Dosage: 0.5MG MORNING 2MG NIGHT
     Route: 048

REACTIONS (1)
  - International normalised ratio increased [Recovered/Resolved]
